FAERS Safety Report 11312264 (Version 1)
Quarter: 2015Q3

REPORT INFORMATION
  Report Type: Spontaneous
  Country: US (occurrence: US)
  Receive Date: 20150727
  Receipt Date: 20150727
  Transmission Date: 20151125
  Serious: Yes (Other)
  Sender: FDA-Public Use
  Company Number: US-PFIZER INC-2015236450

PATIENT
  Age: 47 Year
  Sex: Female

DRUGS (1)
  1. LYRICA [Suspect]
     Active Substance: PREGABALIN
     Dosage: UNK

REACTIONS (12)
  - Irritability [Unknown]
  - Nervousness [Unknown]
  - Peripheral swelling [Unknown]
  - Vision blurred [Unknown]
  - Anxiety [Unknown]
  - Agitation [Unknown]
  - Drug ineffective [Unknown]
  - Dry mouth [Unknown]
  - Disturbance in attention [Unknown]
  - Back disorder [Unknown]
  - Dizziness [Unknown]
  - Weight increased [Unknown]
